FAERS Safety Report 10669857 (Version 3)
Quarter: 2015Q2

REPORT INFORMATION
  Report Type: Spontaneous
  Country: RU (occurrence: RU)
  Receive Date: 20141222
  Receipt Date: 20150407
  Transmission Date: 20150821
  Serious: Yes (Other)
  Sender: FDA-Public Use
  Company Number: RU-SYMPLMED PHARMACEUTICALS-2014SYM00201

PATIENT
  Age: 67 Year
  Sex: Female

DRUGS (8)
  1. ACEON [Suspect]
     Active Substance: PERINDOPRIL ERBUMINE
     Dosage: 5 MG, QD
     Dates: start: 20141208, end: 20141208
  2. LIVIAL [Concomitant]
     Active Substance: TIBOLONE
     Indication: OSTEOPOROSIS PROPHYLAXIS
  3. HYPOTHIAZIDE [Concomitant]
     Indication: HYPERTENSION
     Dosage: 12.5 MG, QD
  4. LIVIAL [Concomitant]
     Active Substance: TIBOLONE
     Indication: MENOPAUSE
     Dosage: 2.5 MG, QD
     Route: 048
     Dates: start: 2012
  5. ACEON [Suspect]
     Active Substance: PERINDOPRIL ERBUMINE
     Indication: HYPERTENSION
     Dosage: 5 MG, QD
     Dates: start: 2004, end: 20141130
  6. ACEON [Suspect]
     Active Substance: PERINDOPRIL ERBUMINE
     Dosage: 5 MG, QD
     Dates: start: 20141201, end: 20141201
  7. ACEON [Suspect]
     Active Substance: PERINDOPRIL ERBUMINE
     Dosage: 5 MG, QD
     Dates: start: 20141202, end: 20141207
  8. ACEON [Suspect]
     Active Substance: PERINDOPRIL ERBUMINE
     Dosage: 5 MG, QD
     Dates: start: 20141209

REACTIONS (5)
  - Tachycardia [Recovered/Resolved]
  - Product quality issue [Recovered/Resolved]
  - Drug ineffective [Recovered/Resolved]
  - Dyspnoea [Recovered/Resolved]
  - Palpitations [Recovered/Resolved]

NARRATIVE: CASE EVENT DATE: 20141201
